FAERS Safety Report 8975553 (Version 2)
Quarter: 2013Q1

REPORT INFORMATION
  Report Type: Spontaneous
  Country: US (occurrence: US)
  Receive Date: 20121219
  Receipt Date: 20130124
  Transmission Date: 20140127
  Serious: Yes (Other)
  Sender: FDA-Public Use
  Company Number: US-AMGEN-USASP2012071967

PATIENT
  Age: 65 Year
  Sex: Female

DRUGS (7)
  1. PROLIA [Suspect]
     Indication: OSTEOPOROSIS POSTMENOPAUSAL
     Dosage: UNK
     Dates: start: 20121030
  2. METROGEL [Concomitant]
     Indication: ROSACEA
     Dosage: UNK
  3. CALCIUM [Concomitant]
     Dosage: UNK
  4. BABY ASPIRIN [Concomitant]
     Dosage: UNK
  5. FISH OIL [Concomitant]
     Dosage: UNK
  6. MULTIVITAMIN                       /00097801/ [Concomitant]
     Dosage: UNK
  7. VITAMIN D3 [Concomitant]
     Dosage: 5000 IU, QOD
     Dates: start: 2012

REACTIONS (9)
  - Head injury [Unknown]
  - Lip swelling [Recovering/Resolving]
  - Cheilitis [Recovering/Resolving]
  - Blister [Recovering/Resolving]
  - Mobility decreased [Unknown]
  - Pain [Unknown]
  - Fall [Unknown]
  - Arthralgia [Recovered/Resolved]
  - Erythema [Recovering/Resolving]
